FAERS Safety Report 7656843-4 (Version None)
Quarter: 2011Q3

REPORT INFORMATION
  Report Type: 
  Country: None (occurrence: None)
  Receive Date: 20110801
  Receipt Date: 20110718
  Transmission Date: 20111222
  Serious: Yes (Disabling, Other)
  Sender: FDA-Public Use
  Company Number: OSCN-NO-0901S-0026

PATIENT
  Age: 55 Year
  Sex: Female

DRUGS (11)
  1. GADOLINIUM (UNSPECIFIED) (GADOLINIUM) [Suspect]
     Indication: PRODUCT USED FOR UNKNOWN INDICATION
     Dosage: SIGNLE DOSE,
     Dates: start: 20020719, end: 20020719
  2. HALOPERIDOL (SERENASE) (HALOPERIDOL) [Concomitant]
  3. EMPERAL (METOCLOPRAMIDE HYDROCHLORIDE) [Concomitant]
  4. MAGNEVIST [Suspect]
     Indication: PRODUCT USED FOR UNKNOWN INDICATION
     Dosage: 10 MG, SINGLE DOSE, INTRA-ARTICULAR, SINGLE DOSE, SINGLE DOSE
     Route: 013
     Dates: start: 20060626, end: 20060626
  5. MAGNEVIST [Suspect]
     Indication: PRODUCT USED FOR UNKNOWN INDICATION
     Dosage: 10 MG, SINGLE DOSE, INTRA-ARTICULAR, SINGLE DOSE, SINGLE DOSE
     Route: 013
     Dates: start: 20010101, end: 20010101
  6. MAGNEVIST [Suspect]
     Indication: PRODUCT USED FOR UNKNOWN INDICATION
     Dosage: 10 MG, SINGLE DOSE, INTRA-ARTICULAR, SINGLE DOSE, SINGLE DOSE
     Route: 013
     Dates: start: 20010101, end: 20010101
  7. OMNISCAN [Suspect]
     Indication: PRODUCT USED FOR UNKNOWN INDICATION
     Dosage: 15 ML, SINGLE DOSE, INTRAVENOUS
     Route: 042
     Dates: start: 20020115, end: 20020115
  8. MIRTAZAPINE ( REMERON) (MIRTAZAPINE) [Concomitant]
  9. METOCLOPRAMIDE [Concomitant]
  10. QUININE SULFATE [Concomitant]
  11. LACTULOSE [Concomitant]

REACTIONS (1)
  - NEPHROGENIC SYSTEMIC FIBROSIS [None]
